FAERS Safety Report 8801705 (Version 2)
Quarter: 2015Q1

REPORT INFORMATION
  Report Type: Report from Study
  Country: US (occurrence: US)
  Receive Date: 20120921
  Receipt Date: 20150320
  Transmission Date: 20150721
  Serious: Yes (Death)
  Sender: FDA-Public Use
  Company Number: US-ROCHE-1123788

PATIENT
  Sex: Male

DRUGS (29)
  1. AVASTIN [Suspect]
     Active Substance: BEVACIZUMAB
     Route: 042
  2. AVASTIN [Suspect]
     Active Substance: BEVACIZUMAB
     Route: 042
  3. ALOXI [Concomitant]
     Active Substance: PALONOSETRON HYDROCHLORIDE
     Route: 042
  4. ZANTAC [Concomitant]
     Active Substance: RANITIDINE HYDROCHLORIDE
     Route: 048
  5. AVASTIN [Suspect]
     Active Substance: BEVACIZUMAB
     Indication: PROSTATE CANCER
     Route: 042
     Dates: start: 20051130
  6. AVASTIN [Suspect]
     Active Substance: BEVACIZUMAB
     Route: 042
  7. LEVAQUIN [Concomitant]
     Active Substance: LEVOFLOXACIN
     Route: 048
  8. AVASTIN [Suspect]
     Active Substance: BEVACIZUMAB
     Route: 042
  9. ACYCLOVIR. [Concomitant]
     Active Substance: ACYCLOVIR
     Route: 065
  10. PEGFILGRASTIM [Concomitant]
     Active Substance: PEGFILGRASTIM
     Route: 058
  11. ZOMETA [Concomitant]
     Active Substance: ZOLEDRONIC ACID
     Route: 042
  12. DURAGESIC [Concomitant]
     Active Substance: FENTANYL
     Dosage: PATCH
     Route: 065
  13. AVASTIN [Suspect]
     Active Substance: BEVACIZUMAB
     Route: 042
  14. DECADRON [Concomitant]
     Active Substance: DEXAMETHASONE
     Route: 042
  15. LOXIFAN [Concomitant]
     Route: 065
  16. FENTANYL. [Concomitant]
     Active Substance: FENTANYL
  17. ARANESP [Concomitant]
     Active Substance: DARBEPOETIN ALFA
     Route: 042
  18. ZOMETA [Concomitant]
     Active Substance: ZOLEDRONIC ACID
     Route: 042
  19. TAXOL [Concomitant]
     Active Substance: PACLITAXEL
     Route: 065
  20. CIPROFLOXACIN. [Concomitant]
     Active Substance: CIPROFLOXACIN
  21. OXYCODONE [Concomitant]
     Active Substance: OXYCODONE
  22. LASIX [Concomitant]
     Active Substance: FUROSEMIDE
     Dosage: FOR 7 DAYS
     Route: 065
  23. ANZEMET [Concomitant]
     Active Substance: DOLASETRON MESYLATE
     Route: 042
  24. DEXTROMETHORPHAN [Concomitant]
     Active Substance: DEXTROMETHORPHAN
     Route: 042
  25. TAXOL [Concomitant]
     Active Substance: PACLITAXEL
     Route: 065
  26. METHYLPHENIDATE [Concomitant]
     Active Substance: METHYLPHENIDATE
     Route: 065
  27. MUCINEX [Concomitant]
     Active Substance: GUAIFENESIN
     Route: 065
  28. BENADRYL [Concomitant]
     Active Substance: DIPHENHYDRAMINE HYDROCHLORIDE
     Route: 042
  29. PERCOCET [Concomitant]
     Active Substance: ACETAMINOPHEN\OXYCODONE HYDROCHLORIDE
     Dosage: PRN
     Route: 065

REACTIONS (27)
  - Death [Fatal]
  - Tendon rupture [Unknown]
  - Emotional distress [Unknown]
  - Cough [Recovering/Resolving]
  - Off label use [Unknown]
  - Fatigue [Unknown]
  - Oedema [Unknown]
  - Musculoskeletal discomfort [Unknown]
  - Nasal disorder [Unknown]
  - Nausea [Unknown]
  - Haemorrhage [Unknown]
  - Erythema [Unknown]
  - Swelling face [Unknown]
  - Gait disturbance [Unknown]
  - Amnesia [Unknown]
  - Deep vein thrombosis [Unknown]
  - Asthenia [Unknown]
  - Pain [Unknown]
  - Peripheral swelling [Unknown]
  - Blood urine present [Unknown]
  - Energy increased [Unknown]
  - Tooth infection [Unknown]
  - Haematochezia [Unknown]
  - Urinary tract infection [Unknown]
  - Weight decreased [Unknown]
  - Diarrhoea [Unknown]
  - Anticoagulation drug level increased [Unknown]
